FAERS Safety Report 16031757 (Version 3)
Quarter: 2019Q2

REPORT INFORMATION
  Report Type: Spontaneous
  Country: GB (occurrence: GB)
  Receive Date: 20190304
  Receipt Date: 20190515
  Transmission Date: 20190711
  Serious: Yes (Other)
  Sender: FDA-Public Use
  Company Number: GB-INCYTE CORPORATION-2019IN001847

PATIENT

DRUGS (2)
  1. JAKAVI [Suspect]
     Active Substance: RUXOLITINIB
     Indication: CHRONIC LEUKAEMIA
     Dosage: UNK UNK, BID
     Route: 048
     Dates: start: 20180619
  2. HYDROXYCARBAMIDE [Concomitant]
     Active Substance: HYDROXYUREA
     Indication: PRODUCT USED FOR UNKNOWN INDICATION
     Dosage: 1 G/500MG, QD
     Route: 048
     Dates: start: 201806

REACTIONS (6)
  - Cholecystitis [Unknown]
  - Cholangitis [Unknown]
  - Cholelithiasis obstructive [Unknown]
  - Haemorrhage [Unknown]
  - Thrombocytopenia [Recovered/Resolved]
  - Product use in unapproved indication [Unknown]

NARRATIVE: CASE EVENT DATE: 20190214
